FAERS Safety Report 9852288 (Version 1)
Quarter: 2014Q1

REPORT INFORMATION
  Report Type: Spontaneous
  Country: US (occurrence: None)
  Receive Date: 20140127
  Receipt Date: 20140127
  Transmission Date: 20141002
  Serious: Yes (Other)
  Sender: FDA-Public Use
  Company Number: US-MDCO-14-00020

PATIENT
  Age: 80 Year
  Sex: Male

DRUGS (1)
  1. ANGIOMAX [Suspect]
     Indication: PERCUTANEOUS CORONARY INTERVENTION
     Dosage: BOLUS
     Dates: start: 200401, end: 201401

REACTIONS (3)
  - Coagulation time abnormal [None]
  - Thrombosis [None]
  - Procedural complication [None]
